FAERS Safety Report 7123752-9 (Version None)
Quarter: 2010Q4

REPORT INFORMATION
  Report Type: 
  Country: None (occurrence: None)
  Receive Date: 20101125
  Receipt Date: 20101112
  Transmission Date: 20110411
  Serious: Yes (Other)
  Sender: FDA-Public Use
  Company Number: PHHY2010DE77517

PATIENT
  Age: 57 Year
  Sex: Male

DRUGS (18)
  1. DIOVAN HCT [Suspect]
     Indication: HYPERTENSION
     Dosage: 1 DF, QD
     Route: 048
     Dates: end: 20100901
  2. DIOVAN HCT [Suspect]
     Dosage: 2 DF, QD
     Route: 048
     Dates: start: 20100901, end: 20101001
  3. DIOVAN HCT [Suspect]
     Dosage: 1 DF DAILY
     Route: 048
     Dates: start: 20101001
  4. DIOVAN HCT [Suspect]
     Dosage: 2 DF DAILY
     Route: 048
     Dates: start: 20101101
  5. DIOVAN HCT [Suspect]
     Dosage: 1 DF, QD
     Route: 048
     Dates: start: 20101101
  6. HYDROCORTISONE [Concomitant]
     Indication: PITUITARY TUMOUR REMOVAL
  7. MINIRIN [Concomitant]
     Indication: PITUITARY TUMOUR REMOVAL
  8. TRAMADOL HCL [Concomitant]
  9. DELTARAN [Concomitant]
  10. TESTOSTERONE [Concomitant]
     Indication: PITUITARY TUMOUR REMOVAL
  11. METFORMIN [Concomitant]
  12. GLIMEPIRIDE [Concomitant]
  13. LEVOTHYROXINE SODIUM [Concomitant]
  14. OMEPRAZOLE [Concomitant]
  15. CYMBALTA [Concomitant]
  16. HYALURONIC ACID [Concomitant]
  17. AMITRIPTYLINE [Concomitant]
  18. SIMVABETA [Concomitant]

REACTIONS (7)
  - ABDOMINAL DISCOMFORT [None]
  - ARTHRALGIA [None]
  - BLOOD PRESSURE INADEQUATELY CONTROLLED [None]
  - BLOOD PRESSURE SYSTOLIC INCREASED [None]
  - DIARRHOEA [None]
  - PITUITARY TUMOUR [None]
  - PITUITARY TUMOUR REMOVAL [None]
